FAERS Safety Report 4723302-8 (Version None)
Quarter: 2005Q3

REPORT INFORMATION
  Report Type: 
  Country: None (occurrence: None)
  Receive Date: 20050725
  Receipt Date: 20041209
  Transmission Date: 20060218
  Serious: No
  Sender: FDA-Public Use
  Company Number: US-BRISTOL-MYERS SQUIBB COMPANY-12791521

PATIENT
  Age: 89 Year
  Sex: Male
  Weight: 66 kg

DRUGS (3)
  1. DOVONEX [Suspect]
     Indication: HYPERAESTHESIA
     Route: 061
     Dates: start: 20041202, end: 20041206
  2. DOVONEX [Suspect]
     Indication: ERYTHEMA
     Route: 061
     Dates: start: 20041202, end: 20041206
  3. EYE DROPS [Concomitant]
     Route: 047

REACTIONS (2)
  - ERYTHEMA [None]
  - SKIN EXFOLIATION [None]
